FAERS Safety Report 6983254-7 (Version None)
Quarter: 2010Q3

REPORT INFORMATION
  Report Type: 
  Country: None (occurrence: None)
  Receive Date: 20100914
  Receipt Date: 20100713
  Transmission Date: 20110219
  Serious: No
  Sender: FDA-Public Use
  Company Number: US-PFIZER INC-2010087665

PATIENT
  Sex: Female

DRUGS (2)
  1. LYRICA [Suspect]
     Dosage: 50 MG, IN THE EVENING
  2. LEXAPRO [Suspect]
     Dosage: UNK

REACTIONS (2)
  - FATIGUE [None]
  - WEIGHT INCREASED [None]
